FAERS Safety Report 18690915 (Version 18)
Quarter: 2025Q1

REPORT INFORMATION
  Report Type: Report from Study
  Country: US (occurrence: US)
  Receive Date: 20210101
  Receipt Date: 20250213
  Transmission Date: 20250409
  Serious: Yes (Hospitalization)
  Sender: TAKEDA
  Company Number: US-TAKEDA-US201931832

PATIENT
  Age: 60 Year
  Sex: Female
  Weight: 104 kg

DRUGS (52)
  1. HUMAN IMMUNOGLOBULIN G\HYALURONIDASE RECOMBINANT HUMAN [Suspect]
     Active Substance: HUMAN IMMUNOGLOBULIN G\HYALURONIDASE (HUMAN RECOMBINANT)
     Indication: Immunodeficiency common variable
     Dosage: 60 GRAM, Q4WEEKS
     Dates: start: 20170911
  2. HUMAN IMMUNOGLOBULIN G\HYALURONIDASE RECOMBINANT HUMAN [Suspect]
     Active Substance: HUMAN IMMUNOGLOBULIN G\HYALURONIDASE (HUMAN RECOMBINANT)
     Indication: Primary immunodeficiency syndrome
     Dosage: 60 GRAM, Q4WEEKS
     Dates: start: 20171109
  3. HUMAN IMMUNOGLOBULIN G\HYALURONIDASE RECOMBINANT HUMAN [Suspect]
     Active Substance: HUMAN IMMUNOGLOBULIN G\HYALURONIDASE (HUMAN RECOMBINANT)
     Dosage: 60 GRAM, Q4WEEKS
     Dates: start: 20180215
  4. HUMAN IMMUNOGLOBULIN G\HYALURONIDASE RECOMBINANT HUMAN [Suspect]
     Active Substance: HUMAN IMMUNOGLOBULIN G\HYALURONIDASE (HUMAN RECOMBINANT)
     Dosage: 70 GRAM, Q4WEEKS
  5. SYMBICORT [Concomitant]
     Active Substance: BUDESONIDE\FORMOTEROL FUMARATE DIHYDRATE
  6. ZITHROMAX [Concomitant]
     Active Substance: AZITHROMYCIN DIHYDRATE
  7. LYRICA [Concomitant]
     Active Substance: PREGABALIN
  8. PRAMIPEXOLE DIHYDROCHLORIDE [Concomitant]
     Active Substance: PRAMIPEXOLE DIHYDROCHLORIDE
  9. AMITRIPTYLINE HYDROCHLORIDE [Concomitant]
     Active Substance: AMITRIPTYLINE HYDROCHLORIDE
  10. ROBAXIN [Concomitant]
     Active Substance: METHOCARBAMOL
  11. NYSTATIN [Concomitant]
     Active Substance: NYSTATIN
  12. DYMISTA [Concomitant]
     Active Substance: AZELASTINE HYDROCHLORIDE\FLUTICASONE PROPIONATE
  13. XANAX [Concomitant]
     Active Substance: ALPRAZOLAM
  14. PREDNISONE [Concomitant]
     Active Substance: PREDNISONE
  15. VAGIFEM [Concomitant]
     Active Substance: ESTRADIOL
  16. DIFLUCAN [Concomitant]
     Active Substance: FLUCONAZOLE
  17. TRAMADOL HCL [Concomitant]
     Active Substance: TRAMADOL HYDROCHLORIDE
  18. TRIAMCINOLONE ACETONIDE [Concomitant]
     Active Substance: TRIAMCINOLONE ACETONIDE
  19. SYNTHROID [Concomitant]
     Active Substance: LEVOTHYROXINE SODIUM
  20. REFRESH TEARS [Concomitant]
     Active Substance: CARBOXYMETHYLCELLULOSE SODIUM
  21. PRILOSEC [Concomitant]
     Active Substance: OMEPRAZOLE MAGNESIUM
  22. AIMOVIG [Concomitant]
     Active Substance: ERENUMAB-AOOE
  23. LATANOPROST [Concomitant]
     Active Substance: LATANOPROST
  24. ACETAMINOPHEN [Concomitant]
     Active Substance: ACETAMINOPHEN
  25. DIPHENHYDRAMINE HYDROCHLORIDE [Concomitant]
     Active Substance: DIPHENHYDRAMINE HYDROCHLORIDE
  26. EPINEPHRINE [Concomitant]
     Active Substance: EPINEPHRINE
  27. HYDROCHLOROTHIAZIDE [Concomitant]
     Active Substance: HYDROCHLOROTHIAZIDE
  28. BOTOX [Concomitant]
     Active Substance: ONABOTULINUMTOXINA
  29. COSENTYX [Concomitant]
     Active Substance: SECUKINUMAB
  30. REFRESH CLASSIC [Concomitant]
     Active Substance: POLYVINYL ALCOHOL\POVIDONE
  31. ESTRACE [Concomitant]
     Active Substance: ESTRADIOL
  32. PROAIR HFA [Concomitant]
     Active Substance: ALBUTEROL SULFATE
  33. PHENERGAN [Concomitant]
     Active Substance: PROMETHAZINE HYDROCHLORIDE
  34. KLOR-CON [Concomitant]
     Active Substance: POTASSIUM CHLORIDE
  35. KETOROLAC TROMETHAMINE [Concomitant]
     Active Substance: KETOROLAC TROMETHAMINE
  36. HYDROCORTISONE [Concomitant]
     Active Substance: HYDROCORTISONE
  37. METHOTREXATE [Concomitant]
     Active Substance: METHOTREXATE
  38. MAXALT [Concomitant]
     Active Substance: RIZATRIPTAN BENZOATE
  39. LORTAB [Concomitant]
     Active Substance: ACETAMINOPHEN\HYDROCODONE BITARTRATE
  40. PREMARIN [Concomitant]
     Active Substance: ESTROGENS, CONJUGATED
  41. TALTZ [Concomitant]
     Active Substance: IXEKIZUMAB
  42. ZIAC [Concomitant]
     Active Substance: BISOPROLOL FUMARATE\HYDROCHLOROTHIAZIDE
  43. PRAMIPEXOLE [Concomitant]
     Active Substance: PRAMIPEXOLE
  44. PROAIR HFA [Concomitant]
     Active Substance: ALBUTEROL SULFATE
  45. PROMETHAZINE HYDROCHLORIDE [Concomitant]
     Active Substance: PROMETHAZINE HYDROCHLORIDE
  46. SODIUM CHLORIDE [Concomitant]
     Active Substance: SODIUM CHLORIDE
  47. HYDROCHLOROTHIAZIDE [Concomitant]
     Active Substance: HYDROCHLOROTHIAZIDE
  48. HYDROCODONE [Concomitant]
     Active Substance: HYDROCODONE
  49. Lmx [Concomitant]
  50. DIPHENHYDRAMINE [Concomitant]
     Active Substance: DIPHENHYDRAMINE
  51. ACETAMINOPHEN [Concomitant]
     Active Substance: ACETAMINOPHEN
  52. METHOCARBAMOL [Concomitant]
     Active Substance: METHOCARBAMOL

REACTIONS (33)
  - Colonoscopy abnormal [Unknown]
  - Illness [Unknown]
  - Pain [Unknown]
  - Pigmentation disorder [Unknown]
  - Dehydration [Unknown]
  - Infection [Unknown]
  - Skin disorder [Unknown]
  - Candida infection [Unknown]
  - Infusion related reaction [Unknown]
  - Alveolar osteitis [Unknown]
  - Gastrointestinal viral infection [Unknown]
  - Mass [Unknown]
  - Nasopharyngitis [Unknown]
  - Tooth disorder [Unknown]
  - Fungal infection [Unknown]
  - Product dose omission issue [Unknown]
  - Malaise [Unknown]
  - Insomnia [Unknown]
  - Migraine [Unknown]
  - Pain in extremity [Unknown]
  - Vomiting [Unknown]
  - Fatigue [Unknown]
  - Hypersomnia [Unknown]
  - Viral infection [Unknown]
  - COVID-19 [Unknown]
  - Insurance issue [Unknown]
  - Pharyngitis streptococcal [Unknown]
  - Respiratory tract infection [Unknown]
  - Immunoglobulins decreased [Unknown]
  - Multiple allergies [Unknown]
  - Inappropriate schedule of product administration [Unknown]
  - Sinusitis [Unknown]
  - Product use issue [Unknown]

NARRATIVE: CASE EVENT DATE: 20240916
